FAERS Safety Report 5783044-7 (Version None)
Quarter: 2008Q2

REPORT INFORMATION
  Report Type: 
  Country: None (occurrence: None)
  Receive Date: 20080619
  Receipt Date: 20080610
  Transmission Date: 20081010
  Serious: Yes (Hospitalization, Other)
  Sender: FDA-Public Use
  Company Number: 144-21880-08050308

PATIENT
  Age: 60 Year
  Sex: Female

DRUGS (3)
  1. REVLIMID [Suspect]
     Indication: MULTIPLE MYELOMA
     Dosage: 25 MG, 1 IN 1 D, ORAL; 10 MG, 1 IN 1 D, ORAL
     Route: 048
     Dates: start: 20080425, end: 20080504
  2. REVLIMID [Suspect]
     Indication: MULTIPLE MYELOMA
     Dosage: 25 MG, 1 IN 1 D, ORAL; 10 MG, 1 IN 1 D, ORAL
     Route: 048
     Dates: start: 20080506
  3. DEXAMETHASONE TAB [Concomitant]

REACTIONS (6)
  - BLOOD CREATINE INCREASED [None]
  - EYELID OEDEMA [None]
  - GENERAL PHYSICAL HEALTH DETERIORATION [None]
  - INFLAMMATION [None]
  - RENAL IMPAIRMENT [None]
  - VISUAL DISTURBANCE [None]
